FAERS Safety Report 4659664-X (Version None)
Quarter: 2005Q2

REPORT INFORMATION
  Report Type: 
  Country: None (occurrence: None)
  Receive Date: 20050502
  Receipt Date: 20050308
  Transmission Date: 20051028
  Serious: No
  Sender: FDA-Public Use
  Company Number: 200417899US

PATIENT
  Age: 43 Year
  Sex: Female
  Weight: 75 kg

DRUGS (3)
  1. KETEK [Suspect]
     Indication: SINUSITIS
     Dosage: 800 MG QD PO
     Route: 048
     Dates: start: 20041002, end: 20041005
  2. PROZAC [Concomitant]
  3. PSEUDOEPHEDRINE HYDROCHLORIDE (SUDAFED) [Concomitant]

REACTIONS (6)
  - CHEST DISCOMFORT [None]
  - CONFUSIONAL STATE [None]
  - DIPLOPIA [None]
  - DYSPNOEA [None]
  - NAUSEA [None]
  - PALPITATIONS [None]
